FAERS Safety Report 16991464 (Version 5)
Quarter: 2020Q2

REPORT INFORMATION
  Report Type: Spontaneous
  Country: US (occurrence: US)
  Receive Date: 20191104
  Receipt Date: 20200506
  Transmission Date: 20200713
  Serious: Yes (Hospitalization, Disabling)
  Sender: FDA-Public Use
  Company Number: US-ACTELION-A-NJ2019-197561

PATIENT
  Age: 60 Year
  Sex: Female
  Weight: 69.84 kg

DRUGS (1)
  1. UPTRAVI [Suspect]
     Active Substance: SELEXIPAG
     Indication: PULMONARY ARTERIAL HYPERTENSION
     Dosage: 600 MCG, BID
     Route: 048

REACTIONS (7)
  - Complications of transplanted kidney [Unknown]
  - Weight increased [Unknown]
  - Transplant evaluation [Unknown]
  - Urinary tract infection [Unknown]
  - Renal failure [Unknown]
  - Fabry^s disease [Unknown]
  - Renal transplant [Unknown]

NARRATIVE: CASE EVENT DATE: 20200123
